FAERS Safety Report 5377643-4 (Version None)
Quarter: 2007Q3

REPORT INFORMATION
  Report Type: 
  Country: None (occurrence: None)
  Receive Date: 20070703
  Receipt Date: 20070622
  Transmission Date: 20080115
  Serious: Yes (Life-Threatening, Hospitalization, Other)
  Sender: FDA-Public Use
  Company Number: DE-PFIZER INC-2007027961

PATIENT
  Sex: Female
  Weight: 61 kg

DRUGS (2)
  1. SUTENT [Suspect]
     Indication: METASTATIC RENAL CELL CARCINOMA
     Dosage: DAILY DOSE:37.5MG
     Route: 048
     Dates: start: 20061001, end: 20070329
  2. IBANDRONATE SODIUM [Concomitant]
     Route: 042

REACTIONS (5)
  - CARDIOMYOPATHY [None]
  - DISEASE PROGRESSION [None]
  - LEFT VENTRICULAR DYSFUNCTION [None]
  - METASTATIC RENAL CELL CARCINOMA [None]
  - SKIN TOXICITY [None]
